FAERS Safety Report 15165880 (Version 2)
Quarter: 2018Q3

REPORT INFORMATION
  Report Type: Spontaneous
  Country: US (occurrence: US)
  Receive Date: 20180719
  Receipt Date: 20180723
  Transmission Date: 20181010
  Serious: Yes (Other)
  Sender: FDA-Public Use
  Company Number: US-ABBVIE-18S-163-2420513-00

PATIENT
  Sex: Female

DRUGS (6)
  1. AMITRIPTYLINE [Suspect]
     Active Substance: AMITRIPTYLINE
     Indication: PRODUCT USED FOR UNKNOWN INDICATION
     Route: 065
  2. XANAX [Suspect]
     Active Substance: ALPRAZOLAM
     Indication: ANXIETY
     Dosage: UNKNOWN
     Route: 065
  3. AMITRIPTYLINE [Suspect]
     Active Substance: AMITRIPTYLINE
     Dosage: INCREASED 20 MG
     Route: 065
  4. PROZAC [Suspect]
     Active Substance: FLUOXETINE HYDROCHLORIDE
     Indication: ANXIETY
     Route: 065
  5. PROZAC [Suspect]
     Active Substance: FLUOXETINE HYDROCHLORIDE
     Route: 065
  6. DEPAKOTE [Suspect]
     Active Substance: DIVALPROEX SODIUM
     Indication: PRODUCT USED FOR UNKNOWN INDICATION
     Dosage: UNKNOWN
     Route: 065

REACTIONS (13)
  - Dry mouth [Unknown]
  - Feeling abnormal [Unknown]
  - Alopecia [Unknown]
  - Vomiting [Unknown]
  - Dehydration [Unknown]
  - Seizure [Unknown]
  - Cerebrovascular accident [Unknown]
  - Feeling drunk [Unknown]
  - Anxiety [Unknown]
  - Hypophagia [Unknown]
  - Headache [Unknown]
  - Ear pain [Unknown]
  - Depression [Unknown]
